FAERS Safety Report 8320093-9 (Version None)
Quarter: 2012Q2

REPORT INFORMATION
  Report Type: 
  Country: None (occurrence: None)
  Receive Date: 20120429
  Receipt Date: 20120420
  Transmission Date: 20120825
  Serious: Yes (Other)
  Sender: FDA-Public Use
  Company Number: GXBR2012US001136

PATIENT
  Sex: Male

DRUGS (4)
  1. CYCLOBENZAPRINE HCL [Suspect]
     Indication: BACK PAIN
     Dosage: UNK DF, UNK
     Dates: end: 20120301
  2. TIKOSYN [Interacting]
     Dosage: 500 MG, BID
     Route: 048
     Dates: start: 20110301, end: 20120301
  3. TIKOSYN [Interacting]
     Dosage: 250 MG, BID
     Route: 048
     Dates: start: 20120301
  4. DIURETICS [Concomitant]
     Indication: CARDIAC DISORDER
     Dosage: UNK DF, UNK

REACTIONS (2)
  - ELECTROCARDIOGRAM QT PROLONGED [None]
  - DRUG INTERACTION [None]
